FAERS Safety Report 21794181 (Version 1)
Quarter: 2022Q4

REPORT INFORMATION
  Report Type: Report from Study
  Country: US (occurrence: None)
  Receive Date: 20221229
  Receipt Date: 20221229
  Transmission Date: 20230112
  Serious: Yes (Death)
  Sender: FDA-Public Use
  Company Number: 2022A418640

PATIENT

DRUGS (2)
  1. TAGRISSO [Suspect]
     Active Substance: OSIMERTINIB
     Indication: Non-small cell lung cancer
     Route: 048
     Dates: start: 20200520
  2. GILOTRIF [Concomitant]
     Active Substance: AFATINIB
     Route: 065

REACTIONS (1)
  - Death [Fatal]
